FAERS Safety Report 4377468-2 (Version None)
Quarter: 2004Q2

REPORT INFORMATION
  Report Type: 
  Country: None (occurrence: None)
  Receive Date: 20040615
  Receipt Date: 20040601
  Transmission Date: 20050107
  Serious: Yes (Other)
  Sender: FDA-Public Use
  Company Number: PHEH2004US05987

PATIENT
  Age: 55 Year
  Sex: Female

DRUGS (3)
  1. MIACALCIN [Suspect]
     Indication: OSTEOPOROSIS
     Dosage: 200IU QD
     Route: 045
     Dates: start: 20030101, end: 20040501
  2. CALCIUM ^BRISTOL-MYERS SQUIBB^ [Concomitant]
  3. VITAMIN D [Concomitant]

REACTIONS (2)
  - ANGINA PECTORIS [None]
  - VENTRICULAR EXTRASYSTOLES [None]
